FAERS Safety Report 23806420 (Version 1)
Quarter: 2024Q2

REPORT INFORMATION
  Report Type: Spontaneous
  Country: IN (occurrence: None)
  Receive Date: 20240502
  Receipt Date: 20240502
  Transmission Date: 20240716
  Serious: Yes (Other)
  Sender: FDA-Public Use
  Company Number: IN-ROCHE-3553476

PATIENT
  Sex: Male

DRUGS (16)
  1. RITUXIMAB [Suspect]
     Active Substance: RITUXIMAB
     Indication: Mantle cell lymphoma
     Route: 065
     Dates: start: 20121211, end: 20130617
  2. RITUXIMAB [Suspect]
     Active Substance: RITUXIMAB
     Route: 065
     Dates: start: 20130901, end: 20150901
  3. IBRUTINIB [Suspect]
     Active Substance: IBRUTINIB
     Indication: Mantle cell lymphoma
     Route: 065
     Dates: start: 20180705, end: 20200810
  4. VENETOCLAX [Suspect]
     Active Substance: VENETOCLAX
     Indication: Mantle cell lymphoma
     Route: 065
  5. BENDAMUSTINE [Suspect]
     Active Substance: BENDAMUSTINE
     Indication: Mantle cell lymphoma
     Route: 065
  6. IFOSFAMIDE [Suspect]
     Active Substance: IFOSFAMIDE
     Indication: Mantle cell lymphoma
     Route: 065
  7. ACALABRUTINIB [Suspect]
     Active Substance: ACALABRUTINIB
     Indication: Mantle cell lymphoma
     Route: 065
  8. BORTEZOMIB [Suspect]
     Active Substance: BORTEZOMIB
     Indication: Mantle cell lymphoma
     Route: 065
  9. LENALIDOMIDE [Suspect]
     Active Substance: LENALIDOMIDE
     Indication: Mantle cell lymphoma
     Route: 065
  10. CYCLOPHOSPHAMIDE [Suspect]
     Active Substance: CYCLOPHOSPHAMIDE
     Indication: Mantle cell lymphoma
     Route: 065
     Dates: start: 20121211, end: 20130617
  11. DOXORUBICIN [Suspect]
     Active Substance: DOXORUBICIN
     Indication: Mantle cell lymphoma
     Route: 065
     Dates: start: 20121211, end: 20130617
  12. VINCRISTINE [Suspect]
     Active Substance: VINCRISTINE
     Indication: Mantle cell lymphoma
     Route: 065
     Dates: start: 20121211, end: 20130617
  13. PREDNISONE [Suspect]
     Active Substance: PREDNISONE
     Indication: Mantle cell lymphoma
     Route: 065
     Dates: start: 20121211, end: 20130617
  14. DEXAMETHASONE [Suspect]
     Active Substance: DEXAMETHASONE
     Indication: Mantle cell lymphoma
     Route: 065
     Dates: start: 20121211, end: 20130617
  15. CYTARABINE [Suspect]
     Active Substance: CYTARABINE
     Indication: Mantle cell lymphoma
     Route: 065
     Dates: start: 20121211, end: 20130617
  16. CISPLATIN [Suspect]
     Active Substance: CISPLATIN
     Indication: Mantle cell lymphoma
     Route: 065
     Dates: start: 20121211, end: 20130617

REACTIONS (1)
  - Disease progression [Unknown]
